FAERS Safety Report 23610801 (Version 2)
Quarter: 2024Q2

REPORT INFORMATION
  Report Type: Spontaneous
  Country: US (occurrence: US)
  Receive Date: 20240308
  Receipt Date: 20240408
  Transmission Date: 20240716
  Serious: Yes (Other)
  Sender: FDA-Public Use
  Company Number: US-Blueprint Medicines Corporation-2643

PATIENT
  Sex: Female

DRUGS (5)
  1. AYVAKIT [Suspect]
     Active Substance: AVAPRITINIB
     Indication: Gastrointestinal stromal tumour
     Route: 048
     Dates: start: 20201125
  2. AYVAKIT [Suspect]
     Active Substance: AVAPRITINIB
     Route: 048
  3. ELIQUIS [Concomitant]
     Active Substance: APIXABAN
     Indication: Product used for unknown indication
     Route: 065
  4. EUCERIN [Concomitant]
     Active Substance: ENSULIZOLE\EUCERIN\OCTINOXATE\OCTISALATE\TITANIUM DIOXIDE\ZINC OXIDE
     Indication: Psoriasis
     Route: 065
  5. NIZORAL [Concomitant]
     Active Substance: KETOCONAZOLE
     Indication: Product used for unknown indication
     Route: 065

REACTIONS (4)
  - Cardiac disorder [Unknown]
  - Psoriasis [Unknown]
  - Alopecia [Unknown]
  - Flatulence [Unknown]
